FAERS Safety Report 7641769-2 (Version None)
Quarter: 2011Q3

REPORT INFORMATION
  Report Type: 
  Country: None (occurrence: None)
  Receive Date: 20110728
  Receipt Date: 20100805
  Transmission Date: 20111222
  Serious: Yes (Hospitalization, Other)
  Sender: FDA-Public Use
  Company Number: US-ROCHE-717627

PATIENT
  Sex: Female
  Weight: 80 kg

DRUGS (10)
  1. TRASTUZUMAB [Suspect]
     Dosage: LOADING DOSE: 8 MG/KG, TOTAL DOSE: 656 MG, FORM: VIALS, LAST DOSE PRIOR TO SAE: 14 JULY 2010.
     Route: 042
     Dates: start: 20100714
  2. POTASSIUM CHLORIDE [Concomitant]
     Dates: start: 20100807
  3. ASPIRIN [Concomitant]
     Dates: start: 20040101
  4. CARBOPLATIN [Suspect]
     Dosage: DOSE LEVEL: 6, UNITS: AUC, FORM: VIALS, LAST DOSE PRIOR TO SAE: 14 JULY 2010.
     Route: 042
     Dates: start: 20100714
  5. AMLODIPINE BESYLATE [Concomitant]
     Dates: start: 20040101
  6. TRASTUZUMAB [Suspect]
     Dosage: DOSE LEVEL 6 MG/KG, TOTAL DOSE: 460 MG, LAST DOSE PRIOR TO SAE: 04 AUGUST 2010
     Route: 042
     Dates: start: 20100804
  7. DOCETAXEL [Suspect]
     Dosage: FORM: VIALS, TOTAL DOSE: 136 MG, LAST DOSE PRIOR TO SAE: 14 JULY  2010.
     Route: 042
     Dates: start: 20100714
  8. DOCETAXEL [Suspect]
     Dosage: TOTAL DOSE: 136 MG, DATE OF LAST DOSE PRIOR TO SAE: 24 AUGUST 2010
     Route: 042
     Dates: start: 20100804
  9. CARBOPLATIN [Suspect]
     Dosage: DOSE LEVEL: 6 AUC, TOTAL DOSE: 720 MG, DATE OF LAST DOSE PRIOR TO SAE: 24 AUGUST 2010
     Route: 042
     Dates: start: 20100804
  10. LOVASTATIN [Concomitant]
     Dates: start: 20040101

REACTIONS (4)
  - NEUTROPENIA [None]
  - NAUSEA [None]
  - LEUKOPENIA [None]
  - HYPOKALAEMIA [None]
